FAERS Safety Report 22236457 (Version 1)
Quarter: 2023Q2

REPORT INFORMATION
  Report Type: Other
  Country: US (occurrence: None)
  Receive Date: 20230420
  Receipt Date: 20230420
  Transmission Date: 20230721
  Serious: No
  Sender: FDA-Public Use
  Company Number: US-ROCHE-3214237

PATIENT

DRUGS (3)
  1. BEVACIZUMAB [Suspect]
     Active Substance: BEVACIZUMAB
     Indication: Retinal vein occlusion
     Route: 050
  2. IMATINIB [Concomitant]
     Active Substance: IMATINIB
     Indication: Gastrointestinal stromal tumour
  3. BINIMETINIB [Concomitant]
     Active Substance: BINIMETINIB
     Indication: Gastrointestinal stromal tumour
     Dosage: 30 MG TWICE DAILY OR 45 MG TWICE DAILY
     Route: 065

REACTIONS (3)
  - Off label use [Unknown]
  - Off label use [Unknown]
  - No adverse event [Unknown]
